FAERS Safety Report 6264851-3 (Version None)
Quarter: 2009Q3

REPORT INFORMATION
  Report Type: 
  Country: None (occurrence: None)
  Receive Date: 20090710
  Receipt Date: 20090701
  Transmission Date: 20100115
  Serious: Yes (Other)
  Sender: FDA-Public Use
  Company Number: ZA-ABBOTT-09P-143-0582968-00

PATIENT
  Sex: Male

DRUGS (2)
  1. KLACID XL [Suspect]
     Indication: SINUSITIS
     Route: 048
     Dates: start: 20090629, end: 20090705
  2. VIBROCIL [Suspect]
     Indication: SINUSITIS
     Route: 045
     Dates: start: 20090629, end: 20090629

REACTIONS (1)
  - ANGIOEDEMA [None]
